FAERS Safety Report 4272924-X (Version None)
Quarter: 2004Q1

REPORT INFORMATION
  Report Type: 
  Country: None (occurrence: None)
  Receive Date: 20040114
  Receipt Date: 20040108
  Transmission Date: 20041129
  Serious: Yes (Hospitalization)
  Sender: FDA-Public Use
  Company Number: 2003188224JP

PATIENT
  Age: 84 Year
  Sex: Female

DRUGS (6)
  1. AROMASIN [Suspect]
     Indication: BREAST CANCER
     Dosage: 25 MG, QD, ORAL
     Route: 048
     Dates: start: 20031113, end: 20031128
  2. JUVELA NICOTINAE (TOCOPHERYL NICOTINATE) [Concomitant]
  3. NORVASC [Concomitant]
  4. SANDONORM (BOPINDOLOL) [Concomitant]
  5. PRAVASTATIN [Concomitant]
  6. PROPIVERINE HYDROCHLORIDE (PROPIVERINE HYDROCHLORIDE) [Concomitant]

REACTIONS (7)
  - ALANINE AMINOTRANSFERASE [None]
  - ASPARTATE AMINOTRANSFERASE [None]
  - CONJUNCTIVITIS [None]
  - LIVER DISORDER [None]
  - NEUTROPENIA [None]
  - OCULAR HYPERAEMIA [None]
  - WHITE BLOOD CELL COUNT DECREASED [None]
